FAERS Safety Report 15148451 (Version 1)
Quarter: 2018Q3

REPORT INFORMATION
  Report Type: Report from Study
  Country: US (occurrence: US)
  Receive Date: 20180716
  Receipt Date: 20180716
  Transmission Date: 20181010
  Serious: Yes (Other)
  Sender: FDA-Public Use
  Company Number: US-GILEAD-2018-0340287

PATIENT
  Age: 37 Year
  Sex: Female

DRUGS (3)
  1. AMBRISENTAN [Suspect]
     Active Substance: AMBRISENTAN
     Indication: SYSTEMIC LUPUS ERYTHEMATOSUS
     Dosage: 10 MG, QD
     Route: 048
     Dates: end: 20180620
  2. AMBRISENTAN [Suspect]
     Active Substance: AMBRISENTAN
     Dosage: 10 MG, QD
     Route: 048
     Dates: start: 20180623, end: 20180627
  3. AMBRISENTAN [Suspect]
     Active Substance: AMBRISENTAN
     Indication: PULMONARY ARTERIAL HYPERTENSION
     Dosage: 10 MG, QD
     Route: 048
     Dates: start: 20180427, end: 20180504

REACTIONS (7)
  - Headache [Not Recovered/Not Resolved]
  - Vomiting [Recovered/Resolved]
  - Swelling face [Unknown]
  - Swelling face [Recovered/Resolved]
  - Tachycardia [Recovered/Resolved]
  - Tremor [Recovered/Resolved]
  - Headache [Recovered/Resolved]

NARRATIVE: CASE EVENT DATE: 20180430
